FAERS Safety Report 13508541 (Version 4)
Quarter: 2018Q3

REPORT INFORMATION
  Report Type: Spontaneous
  Country: US (occurrence: US)
  Receive Date: 20170503
  Receipt Date: 20180822
  Transmission Date: 20181010
  Serious: No
  Sender: FDA-Public Use
  Company Number: US-PFIZER INC-2017190685

PATIENT
  Age: 5 Year
  Sex: Female
  Weight: 58 kg

DRUGS (6)
  1. CONSTULOSE [Concomitant]
     Active Substance: LACTULOSE
     Dosage: UNK
     Route: 048
     Dates: start: 20160809
  2. GENOTROPIN [Suspect]
     Active Substance: SOMATROPIN
     Dosage: 2.8 MG, DAILY
     Route: 058
     Dates: start: 20140901
  3. GENOTROPIN [Suspect]
     Active Substance: SOMATROPIN
     Indication: GROWTH HORMONE DEFICIENCY
     Dosage: 2.9 MG, DAILY
     Route: 058
     Dates: start: 201003, end: 2010
  4. GENOTROPIN [Suspect]
     Active Substance: SOMATROPIN
     Dosage: 3 MG, ALTERNATE DAY (ALTERNATE DOSES OF 3 MG AND 2.8 DAILY)
     Route: 058
     Dates: start: 20100416
  5. GENOTROPIN [Suspect]
     Active Substance: SOMATROPIN
     Dosage: 2.8 MG, ALTERNATE DAY (ALTERNATE DOSES OF 3 MG AND 2.8 DAILY)
     Route: 058
     Dates: start: 20100416
  6. GENOTROPIN [Suspect]
     Active Substance: SOMATROPIN
     Indication: GROWTH HORMONE DEFICIENCY
     Dosage: 2.8 MG, DAILY
     Route: 058
     Dates: start: 2010

REACTIONS (11)
  - Headache [Unknown]
  - Vitamin D decreased [Unknown]
  - Sex hormone binding globulin decreased [Unknown]
  - Blood alkaline phosphatase increased [Unknown]
  - Injection site pain [Unknown]
  - Arthralgia [Unknown]
  - Intentional product misuse [Unknown]
  - Drug prescribing error [Unknown]
  - Vaginal haemorrhage [Recovered/Resolved]
  - Blood creatinine decreased [Unknown]
  - Thyroxine free decreased [Unknown]

NARRATIVE: CASE EVENT DATE: 201003
